FAERS Safety Report 15762934 (Version 2)
Quarter: 2018Q4

REPORT INFORMATION
  Report Type: Spontaneous
  Country: US (occurrence: US)
  Receive Date: 20181226
  Receipt Date: 20181231
  Transmission Date: 20190205
  Serious: No
  Sender: FDA-Public Use
  Company Number: US-PFIZER INC-2018522405

PATIENT
  Age: 79 Year
  Sex: Female
  Weight: 56.7 kg

DRUGS (1)
  1. PREMARIN [Suspect]
     Active Substance: ESTROGENS, CONJUGATED
     Indication: ARTIFICIAL MENOPAUSE
     Dosage: 0.625MG TABLETS CUT IN HALF BY MOUTH DAILY
     Route: 048

REACTIONS (9)
  - Acne [Recovered/Resolved]
  - Heart rate increased [Recovered/Resolved]
  - Nightmare [Recovered/Resolved]
  - Abdominal discomfort [Recovered/Resolved]
  - Mood swings [Recovered/Resolved]
  - Dry skin [Recovered/Resolved]
  - Anger [Recovered/Resolved]
  - Erythema [Recovered/Resolved]
  - Muscle spasms [Recovered/Resolved]

NARRATIVE: CASE EVENT DATE: 201811
